FAERS Safety Report 21878652 (Version 2)
Quarter: 2023Q2

REPORT INFORMATION
  Report Type: Spontaneous
  Country: FI (occurrence: FI)
  Receive Date: 20230118
  Receipt Date: 20230402
  Transmission Date: 20230722
  Serious: Yes (Hospitalization, Other)
  Sender: FDA-Public Use
  Company Number: FI-JNJFOC-20230125409

PATIENT
  Age: 7 Week
  Sex: Female

DRUGS (1)
  1. STELARA [Suspect]
     Active Substance: USTEKINUMAB
     Indication: Product used for unknown indication
     Route: 064

REACTIONS (5)
  - Apnoea [Unknown]
  - Macrocephaly [Unknown]
  - Nasopharyngitis [Unknown]
  - Phototherapy [Unknown]
  - Foetal exposure during pregnancy [Unknown]
